FAERS Safety Report 8928943 (Version 1)
Quarter: 2012Q4

REPORT INFORMATION
  Report Type: 
  Country: US (occurrence: US)
  Receive Date: 20121128
  Receipt Date: 20121128
  Transmission Date: 20130627
  Serious: Yes (Hospitalization)
  Sender: FDA-Public Use
  Company Number: US-009507513-1211USA010155

PATIENT
  Age: 67 Year
  Sex: Female
  Weight: 71.5 kg

DRUGS (12)
  1. TEMOZOLOMIDE [Suspect]
     Indication: GLIOBLASTOMA
     Dosage: 360 mg, qd
     Route: 048
     Dates: start: 20100527, end: 20100531
  2. TEMOZOLOMIDE [Suspect]
     Dosage: 360 mg, qd
     Route: 048
     Dates: start: 20100624, end: 20100628
  3. BEVACIZUMAB [Suspect]
     Indication: GLIOBLASTOMA
     Dosage: 715 mg, qow
     Route: 042
     Dates: start: 20100527, end: 20100624
  4. IRINOTECAN HYDROCHLORIDE [Suspect]
     Indication: GLIOBLASTOMA
     Dosage: 230 (units unknown) 1 in 2 week
     Route: 042
     Dates: start: 20100527, end: 20100624
  5. ZOLOFT [Concomitant]
  6. VITAMIN D (UNSPECIFIED) [Concomitant]
  7. VITAMINS (UNSPECIFIED) [Concomitant]
  8. PEPCID [Concomitant]
  9. ADVAIR [Concomitant]
  10. ASPIRIN [Concomitant]
  11. DECADRON (DEXAMETHASONE) [Concomitant]
  12. RHINOCORT (BUDESONIDE) [Concomitant]

REACTIONS (1)
  - Infection [Unknown]
